FAERS Safety Report 8389377 (Version 5)
Quarter: 2012Q4

REPORT INFORMATION
  Report Type: Report from Study
  Country: JP (occurrence: JP)
  Receive Date: 20120203
  Receipt Date: 20120913
  Transmission Date: 20130627
  Serious: Yes (Hospitalization, Other)
  Sender: FDA-Public Use
  Company Number: JP-ROCHE-1036339

PATIENT
  Age: 73 Year
  Sex: Female
  Weight: 47 kg

DRUGS (20)
  1. RANIBIZUMAB [Suspect]
     Indication: AGE-RELATED MACULAR DEGENERATION
     Dosage: left eye
     Route: 050
     Dates: start: 20111206
  2. RANIBIZUMAB [Suspect]
     Dosage: left eye
     Route: 050
     Dates: start: 20120106
  3. RANIBIZUMAB [Suspect]
     Dosage: right eye
     Route: 050
     Dates: start: 20120113
  4. RANIBIZUMAB [Suspect]
     Dosage: right eye
     Route: 050
     Dates: start: 20120313
  5. RANIBIZUMAB [Suspect]
     Dosage: right eye
     Route: 050
     Dates: start: 20120409
  6. RANIBIZUMAB [Suspect]
     Dosage: right eye
     Route: 050
     Dates: start: 20120514
  7. INDAPAMIDE [Suspect]
     Indication: PRODUCT USED FOR UNKNOWN INDICATION
     Route: 048
     Dates: end: 20120124
  8. VISUDYNE [Concomitant]
     Indication: AGE-RELATED MACULAR DEGENERATION
     Route: 042
     Dates: start: 200709
  9. CRAVIT [Concomitant]
     Route: 065
     Dates: start: 201112, end: 201205
  10. PRIMPERAN (JAPAN) [Concomitant]
     Route: 065
     Dates: start: 20120124, end: 20120124
  11. OLMETEC [Concomitant]
  12. ARTIST [Concomitant]
  13. GLACTIV [Concomitant]
  14. ZETIA [Concomitant]
  15. CARDENALIN [Concomitant]
  16. TAKEPRON [Concomitant]
  17. DEPAS [Concomitant]
  18. GASTROM [Concomitant]
  19. GASMOTIN [Concomitant]
  20. TRICOR [Concomitant]

REACTIONS (3)
  - Inappropriate schedule of drug administration [Unknown]
  - Inappropriate antidiuretic hormone secretion [Recovered/Resolved]
  - Vomiting [None]
